FAERS Safety Report 17151385 (Version 1)
Quarter: 2019Q4

REPORT INFORMATION
  Report Type: Spontaneous
  Country: US (occurrence: US)
  Receive Date: 20191213
  Receipt Date: 20191213
  Transmission Date: 20200122
  Serious: Yes (Other)
  Sender: FDA-Public Use
  Company Number: US-SUNOVION-2019SUN005281

PATIENT
  Sex: Male

DRUGS (1)
  1. LATUDA [Suspect]
     Active Substance: LURASIDONE HYDROCHLORIDE
     Dosage: 60 MG, BID
     Route: 048

REACTIONS (6)
  - Weight decreased [Unknown]
  - Decreased activity [Unknown]
  - Somnolence [Unknown]
  - Suicide attempt [Unknown]
  - Off label use [Unknown]
  - Feeding disorder [Unknown]
